FAERS Safety Report 20175050 (Version 1)
Quarter: 2021Q4

REPORT INFORMATION
  Report Type: Spontaneous
  Country: US (occurrence: None)
  Receive Date: 20211210
  Receipt Date: 20211210
  Transmission Date: 20220303
  Serious: Yes (Hospitalization)
  Sender: FDA-Public Use
  Company Number: None

PATIENT
  Sex: Male

DRUGS (1)
  1. OCTREOTIDE [Suspect]
     Active Substance: OCTREOTIDE
     Indication: Growth disorder
     Dosage: FREQUENCY : TWICE A DAY;?
     Route: 058
     Dates: start: 20210828

REACTIONS (3)
  - Liver function test abnormal [None]
  - Therapy interrupted [None]
  - Intestinal obstruction [None]
